FAERS Safety Report 17435449 (Version 1)
Quarter: 2020Q1

REPORT INFORMATION
  Report Type: Spontaneous
  Country: US (occurrence: US)
  Receive Date: 20200219
  Receipt Date: 20200219
  Transmission Date: 20200409
  Serious: Yes (Other)
  Sender: FDA-Public Use
  Company Number: US-BAYER-2020-028521

PATIENT
  Age: 16 Year
  Sex: Female

DRUGS (1)
  1. SKYLA [Suspect]
     Active Substance: LEVONORGESTREL
     Indication: CONTRACEPTION
     Dosage: 14 ?G PER DAY, CONT
     Route: 015
     Dates: start: 20190626, end: 202001

REACTIONS (3)
  - Genital haemorrhage [None]
  - Abdominal pain lower [None]
  - Pelvic pain [None]

NARRATIVE: CASE EVENT DATE: 2019
